FAERS Safety Report 9394314 (Version 2)
Quarter: 2013Q3

REPORT INFORMATION
  Report Type: Report from Study
  Country: FR (occurrence: FR)
  Receive Date: 20130711
  Receipt Date: 20130711
  Transmission Date: 20140515
  Serious: Yes (Other)
  Sender: FDA-Public Use
  Company Number: FR-ROCHE-1211721

PATIENT
  Age: 73 Year
  Sex: Female
  Weight: 43 kg

DRUGS (4)
  1. RITUXIMAB [Suspect]
     Indication: CHRONIC LYMPHOCYTIC LEUKAEMIA
     Dosage: LAST DOSE PRIOR TO SAE WAS ADMINISTERED ON 29/DEC/2010 IN ASSCIATION WITH STEROIDS.
     Route: 042
     Dates: start: 20091116, end: 20101229
  2. RITUXIMAB [Suspect]
     Route: 041
     Dates: start: 20100208, end: 20100208
  3. FLUDARABINE [Suspect]
     Indication: CHRONIC LYMPHOCYTIC LEUKAEMIA
     Route: 048
     Dates: start: 20100208, end: 20100210
  4. CYCLOPHOSPHAMIDE [Suspect]
     Indication: CHRONIC LYMPHOCYTIC LEUKAEMIA
     Route: 048
     Dates: start: 20100208, end: 20100210

REACTIONS (4)
  - Squamous cell carcinoma [Recovered/Resolved]
  - Basal cell carcinoma [Recovered/Resolved]
  - Hypogammaglobulinaemia [Unknown]
  - Sinusitis [Unknown]
